FAERS Safety Report 7299664-7 (Version None)
Quarter: 2011Q1

REPORT INFORMATION
  Report Type: 
  Country: None (occurrence: None)
  Receive Date: 20110217
  Receipt Date: 20110211
  Transmission Date: 20110831
  Serious: Yes (Other)
  Sender: FDA-Public Use
  Company Number: US-PFIZER INC-2011032352

PATIENT

DRUGS (2)
  1. AVALIDE [Suspect]
     Dosage: 300/12.5 UNK, UNK
  2. CADUET [Suspect]

REACTIONS (4)
  - TRANSAMINASES INCREASED [None]
  - BLOOD TESTOSTERONE DECREASED [None]
  - SERUM FERRITIN INCREASED [None]
  - PORPHYRIA [None]
